FAERS Safety Report 16952342 (Version 1)
Quarter: 2019Q4

REPORT INFORMATION
  Report Type: Spontaneous
  Country: US (occurrence: US)
  Receive Date: 20190904
  Receipt Date: 20190904
  Transmission Date: 20200122
  Serious: No
  Sender: FDA-Public Use
  Company Number: None

PATIENT
  Age: 63 Year
  Sex: Male

DRUGS (1)
  1. HUMIRA [Suspect]
     Active Substance: ADALIMUMAB
     Indication: POLYCHONDRITIS
     Route: 058
     Dates: start: 20190725, end: 20190831

REACTIONS (5)
  - Rash [None]
  - Dyspnoea [None]
  - Hypersensitivity [None]
  - Skin ulcer [None]
  - Arthritis [None]

NARRATIVE: CASE EVENT DATE: 201908
